FAERS Safety Report 6439203-3 (Version None)
Quarter: 2009Q4

REPORT INFORMATION
  Report Type: 
  Country: None (occurrence: None)
  Receive Date: 20091113
  Receipt Date: 20091105
  Transmission Date: 20100525
  Serious: Yes (Other)
  Sender: FDA-Public Use
  Company Number: CA-JNJFOC-20091102374

PATIENT
  Sex: Female

DRUGS (1)
  1. REMICADE [Suspect]
     Indication: CROHN'S DISEASE
     Dosage: 3 VIALS
     Route: 042

REACTIONS (4)
  - BLINDNESS [None]
  - DYSPNOEA [None]
  - HEADACHE [None]
  - HYPOAESTHESIA [None]
